FAERS Safety Report 18791446 (Version 1)
Quarter: 2021Q1

REPORT INFORMATION
  Report Type: Spontaneous
  Country: US (occurrence: US)
  Receive Date: 20210126
  Receipt Date: 20210126
  Transmission Date: 20210419
  Serious: No
  Sender: FDA-Public Use
  Company Number: US-FRESENIUS MEDICAL CARE RENAL THERAPIES GROUP-FMC-2101-000058

PATIENT
  Sex: Female

DRUGS (1)
  1. DELFLEX WITH DEXTROSE 2.5% LOW MAGNESIUM LOW CALCIUM [Suspect]
     Active Substance: CALCIUM CHLORIDE\DEXTROSE\MAGNESIUM CHLORIDE\SODIUM CHLORIDE\SODIUM LACTATE
     Indication: END STAGE RENAL DISEASE
     Dosage: CYCLE 4: FV=2499ML, FT=11MIN, DWT=30SMIN, DV=2805ML, DT=93FMIN, UF=ML; NET UF: 0ML
     Route: 033

REACTIONS (2)
  - Abdominal discomfort [Unknown]
  - Malaise [Unknown]
